FAERS Safety Report 21018576 (Version 4)
Quarter: 2024Q3

REPORT INFORMATION
  Report Type: Spontaneous
  Country: CA (occurrence: CA)
  Receive Date: 20220628
  Receipt Date: 20240903
  Transmission Date: 20241017
  Serious: Yes (Hospitalization)
  Sender: COVIS PHARMA
  Company Number: CA-AstraZeneca-2020SE67936

PATIENT
  Age: 65 Year
  Sex: Female

DRUGS (31)
  1. ALVESCO [Suspect]
     Active Substance: CICLESONIDE
     Route: 055
     Dates: start: 201904
  2. ALVESCO [Suspect]
     Active Substance: CICLESONIDE
     Dosage: UNKNOWN
     Route: 055
  3. ALVESCO [Suspect]
     Active Substance: CICLESONIDE
     Dosage: 400.0UG UNKNOWN
     Route: 055
  4. ALVESCO [Suspect]
     Active Substance: CICLESONIDE
     Dosage: 200.0UG UNKNOWN
     Route: 055
  5. ALVESCO [Suspect]
     Active Substance: CICLESONIDE
     Dosage: 200 UG 2 EVERY 1 DAYS CICLESONIDE UNKNOWN
     Route: 055
  6. ALVESCO [Suspect]
     Active Substance: CICLESONIDE
     Dosage: UNKNOWN
  7. ALVESCO [Suspect]
     Active Substance: CICLESONIDE
     Dosage: 1.0DF UNKNOWN
  8. ALVESCO [Suspect]
     Active Substance: CICLESONIDE
     Dosage: UNKNOWN
  9. CICLESONIDE [Suspect]
     Active Substance: CICLESONIDE
     Dosage: 200 BID (2 PUFF(S), (2 PUFF AT AM AND 2 PUFF AT PM)
     Route: 065
  10. SYMBICORT [Suspect]
     Active Substance: BUDESONIDE\FORMOTEROL FUMARATE DIHYDRATE
     Dosage: 2 PUFFS, TWO TIMES A DAY(2 PUFF AT AM AND 2 PUFF AT PM)
     Route: 055
     Dates: start: 201904
  11. SYMBICORT [Suspect]
     Active Substance: BUDESONIDE\FORMOTEROL FUMARATE DIHYDRATE
     Dosage: 2 DF, TWO TIMES A DAY
  12. BUDESONIDE\FORMOTEROL FUMARATE [Suspect]
     Active Substance: BUDESONIDE\FORMOTEROL FUMARATE
     Route: 055
  13. BUDESONIDE\FORMOTEROL FUMARATE [Suspect]
     Active Substance: BUDESONIDE\FORMOTEROL FUMARATE
     Dosage: 2DF, TWO TIMES A DAY
  14. ADVAIR HFA [Suspect]
     Active Substance: FLUTICASONE PROPIONATE\SALMETEROL XINAFOATE
     Dosage: TWO TIMES A DAY
  15. ATROVENT [Suspect]
     Active Substance: IPRATROPIUM BROMIDE
  16. ATROVENT [Suspect]
     Active Substance: IPRATROPIUM BROMIDE
  17. RUPATADINE FUMARATE [Suspect]
     Active Substance: RUPATADINE FUMARATE
     Indication: Multiple allergies
     Dosage: UNKNOWN
  18. RUPATADINE FUMARATE [Suspect]
     Active Substance: RUPATADINE FUMARATE
     Dosage: UNKNOWN
  19. ALBUTEROL SULFATE [Suspect]
     Active Substance: ALBUTEROL SULFATE
  20. ALBUTEROL SULFATE [Suspect]
     Active Substance: ALBUTEROL SULFATE
     Route: 055
  21. ALBUTEROL SULFATE [Suspect]
     Active Substance: ALBUTEROL SULFATE
     Dosage: EVERY DAY
  22. ZITHROMAX [Suspect]
     Active Substance: AZITHROMYCIN DIHYDRATE
     Dates: start: 201811
  23. NUCALA [Suspect]
     Active Substance: MEPOLIZUMAB
     Indication: Asthma
     Route: 042
     Dates: start: 20190514
  24. NUCALA [Suspect]
     Active Substance: MEPOLIZUMAB
     Route: 065
  25. NUCALA [Suspect]
     Active Substance: MEPOLIZUMAB
     Route: 042
  26. NUCALA [Suspect]
     Active Substance: MEPOLIZUMAB
     Route: 042
  27. NUCALA [Suspect]
     Active Substance: MEPOLIZUMAB
     Route: 042
  28. NUCALA [Suspect]
     Active Substance: MEPOLIZUMAB
     Route: 042
  29. ALBUTEROL [Suspect]
     Active Substance: ALBUTEROL
     Route: 055
  30. ALBUTEROL [Suspect]
     Active Substance: ALBUTEROL
  31. ALBUTEROL [Suspect]
     Active Substance: ALBUTEROL
     Route: 055

REACTIONS (9)
  - Therapeutic product effect incomplete [Unknown]
  - Loss of personal independence in daily activities [Recovered/Resolved]
  - Sleep disorder due to a general medical condition [Recovered/Resolved]
  - Therapeutic product effect incomplete [Recovered/Resolved]
  - Asthma [Unknown]
  - Dyspnoea [Unknown]
  - Wheezing [Recovered/Resolved]
  - Asthma [Recovered/Resolved]
  - Dyspnoea [Recovered/Resolved]
